FAERS Safety Report 23958656 (Version 2)
Quarter: 2024Q3

REPORT INFORMATION
  Report Type: Spontaneous
  Country: US (occurrence: US)
  Receive Date: 20240610
  Receipt Date: 20240814
  Transmission Date: 20241016
  Serious: Yes (Death, Hospitalization)
  Sender: JOHNSON AND JOHNSON
  Company Number: US-JNJFOC-20240612790

PATIENT
  Age: 67 Year
  Sex: Female

DRUGS (1)
  1. TECVAYLI [Suspect]
     Active Substance: TECLISTAMAB-CQYV
     Indication: Plasma cell myeloma
     Dosage: THE LAST TREATMENT WAS ON MARCH 2024
     Route: 058
     Dates: start: 202312, end: 202403

REACTIONS (4)
  - Infection [Fatal]
  - Diarrhoea [Unknown]
  - Nausea [Unknown]
  - Acidosis [Unknown]

NARRATIVE: CASE EVENT DATE: 20240301
